FAERS Safety Report 6127954-X (Version None)
Quarter: 2009Q1

REPORT INFORMATION
  Report Type: 
  Country: None (occurrence: None)
  Receive Date: 20090323
  Receipt Date: 20090311
  Transmission Date: 20090719
  Serious: Yes (Hospitalization)
  Sender: FDA-Public Use
  Company Number: US-ELI_LILLY_AND_COMPANY-US200903001025

PATIENT
  Sex: Male
  Weight: 112.2 kg

DRUGS (5)
  1. B4Z-US-X056 PH IV EVALUATION OF ATOMOXET [Suspect]
     Indication: DRUG DEPENDENCE
     Dosage: UNK, DAILY (1/D)
     Route: 048
     Dates: start: 20081001, end: 20081223
  2. COREG [Concomitant]
     Indication: HYPERTENSION
     Dates: start: 20080922
  3. RELPAX [Concomitant]
     Indication: MIGRAINE
     Dates: start: 20081027, end: 20081103
  4. BENADRYL [Concomitant]
  5. ADVIL COLD AND SINUS [Concomitant]

REACTIONS (1)
  - TYPE 2 DIABETES MELLITUS [None]
